FAERS Safety Report 5569406-1 (Version None)
Quarter: 2007Q4

REPORT INFORMATION
  Report Type: 
  Country: None (occurrence: None)
  Receive Date: 20071220
  Receipt Date: 20071217
  Transmission Date: 20080405
  Serious: Yes (Hospitalization, Other)
  Sender: FDA-Public Use
  Company Number: ES-JNJFOC-20071005839

PATIENT
  Age: 54 Year
  Sex: Female

DRUGS (3)
  1. CAELYX [Suspect]
     Route: 042
  2. CAELYX [Suspect]
     Indication: OVARIAN CANCER
     Dosage: APPROXIMATELY 5 INFUSIONS
     Route: 042
  3. VITAMIN B6 [Concomitant]
     Route: 065

REACTIONS (9)
  - APHTHOUS STOMATITIS [None]
  - ERYTHEMA [None]
  - SKIN EXFOLIATION [None]
  - SKIN LESION [None]
  - SKIN REACTION [None]
  - STEVENS-JOHNSON SYNDROME [None]
  - SWELLING [None]
  - SWOLLEN TONGUE [None]
  - TOXIC SKIN ERUPTION [None]
